FAERS Safety Report 15133707 (Version 3)
Quarter: 2019Q1

REPORT INFORMATION
  Report Type: Spontaneous
  Country: FR (occurrence: FR)
  Receive Date: 20180712
  Receipt Date: 20190306
  Transmission Date: 20190417
  Serious: Yes (Death, Life-Threatening, Hospitalization, Other)
  Sender: FDA-Public Use
  Company Number: FR-ACCORD-069475

PATIENT
  Age: 46 Year
  Sex: Male

DRUGS (5)
  1. CISPLATIN. [Suspect]
     Active Substance: CISPLATIN
     Indication: TESTICULAR SEMINOMA (PURE) STAGE II
     Dates: start: 201404
  2. IDARUBICIN [Suspect]
     Active Substance: IDARUBICIN
     Indication: CHLOROMA
     Route: 062
  3. BLEOMYCIN [Suspect]
     Active Substance: BLEOMYCIN SULFATE
     Indication: TESTICULAR SEMINOMA (PURE) STAGE II
     Dates: start: 201404
  4. CYTARABINE/CYTARABINE HYDROCHLORIDE/CYTARABINE OCFOSFATE [Suspect]
     Active Substance: CYTARABINE
     Indication: CHLOROMA
     Route: 062
  5. ETOPOSIDE. [Suspect]
     Active Substance: ETOPOSIDE
     Indication: TESTICULAR SEMINOMA (PURE) STAGE II
     Dates: start: 201404

REACTIONS (6)
  - Thrombocytopenia [Fatal]
  - Pneumonia [Fatal]
  - Colitis [Fatal]
  - Chloroma [Unknown]
  - Acute myeloid leukaemia [Unknown]
  - Subdural haemorrhage [Fatal]
